FAERS Safety Report 5118174-6 (Version None)
Quarter: 2006Q3

REPORT INFORMATION
  Report Type: 
  Country: None (occurrence: None)
  Receive Date: 20060926
  Receipt Date: 20060913
  Transmission Date: 20061208
  Serious: Yes (Death)
  Sender: FDA-Public Use
  Company Number: DE200609003272

PATIENT
  Age: 72 Year
  Sex: Female

DRUGS (16)
  1. FORTEO [Suspect]
     Indication: OSTEOPOROSIS
     Dosage: 20 UG, SUBCUTANEOUS
     Route: 058
     Dates: start: 20060821, end: 20060901
  2. FORTEO PEN (250 MCG/ML) (FORTEO 250MCG/ML (3ML)) PEN, DISPOSABLE [Concomitant]
  3. MARCUMAR [Concomitant]
  4. PREDNISOLONE [Concomitant]
  5. NEBIVOLOL HCL [Concomitant]
  6. L-THYROXINE (LEVOTHYROXINE SODIUM) [Concomitant]
  7. OMEP (OMEPRAZOLE) [Concomitant]
  8. SILDENAFIL CITRATE [Concomitant]
  9. AMTRIPTYLINE (AMITRIPTYLINE) [Concomitant]
  10. FUROSEMIDE [Concomitant]
  11. SYMBICORT/CAN/(BUDESONIDE, FORMOTEROL FUMARATE) [Concomitant]
  12. SPIRIVA [Concomitant]
  13. DUROGESIC/DEN/(FENTANYL) [Concomitant]
  14. DIPYRONE TAB [Concomitant]
  15. TRAMADOL HCL [Concomitant]
  16. METEX (METHOTREXATE SODIUM) [Concomitant]

REACTIONS (1)
  - DEATH [None]
